FAERS Safety Report 6716254-2 (Version None)
Quarter: 2010Q2

REPORT INFORMATION
  Report Type: 
  Country: None (occurrence: None)
  Receive Date: 20100507
  Receipt Date: 20100427
  Transmission Date: 20101027
  Serious: Yes (Other)
  Sender: FDA-Public Use
  Company Number: BR-PFIZER INC-2010053507

PATIENT
  Age: 48 Year
  Sex: Female
  Weight: 95 kg

DRUGS (1)
  1. CHAMPIX [Suspect]
     Indication: TOBACCO USER
     Dosage: 0.5 MG, EVERY 24 HOURS
     Route: 048
     Dates: start: 20100419

REACTIONS (3)
  - DRY MOUTH [None]
  - INSOMNIA [None]
  - NERVOUSNESS [None]
